FAERS Safety Report 13082408 (Version 1)
Quarter: 2017Q1

REPORT INFORMATION
  Report Type: Spontaneous
  Country: US (occurrence: US)
  Receive Date: 20170103
  Receipt Date: 20170103
  Transmission Date: 20170428
  Serious: Yes (Other)
  Sender: FDA-Public Use
  Company Number: US-BION-005824

PATIENT
  Age: 75 Year
  Sex: Female
  Weight: 78.91 kg

DRUGS (1)
  1. ALEVE [Suspect]
     Active Substance: NAPROXEN SODIUM
     Indication: PAIN
     Route: 048
     Dates: start: 20161205

REACTIONS (3)
  - Product use issue [Unknown]
  - Wrong technique in product usage process [Not Recovered/Not Resolved]
  - Chemical burn of gastrointestinal tract [Recovered/Resolved]

NARRATIVE: CASE EVENT DATE: 20161205
